FAERS Safety Report 8582108-2 (Version None)
Quarter: 2012Q3

REPORT INFORMATION
  Report Type: 
  Country: None (occurrence: None)
  Receive Date: 20120809
  Receipt Date: 20120807
  Transmission Date: 20120928
  Serious: Yes (Other)
  Sender: FDA-Public Use
  Company Number: PHEH2012US015462

PATIENT
  Age: 76 Year
  Sex: Male

DRUGS (1)
  1. VOLTAREN-XR [Suspect]
     Indication: PROCEDURAL PAIN
     Dosage: UNK UKN, UNK
     Route: 048

REACTIONS (5)
  - LIP SWELLING [None]
  - PROSTATE CANCER [None]
  - TONGUE NEOPLASM MALIGNANT STAGE UNSPECIFIED [None]
  - CAROTID ARTERY OCCLUSION [None]
  - RASH GENERALISED [None]
